FAERS Safety Report 17251629 (Version 2)
Quarter: 2020Q1

REPORT INFORMATION
  Report Type: Spontaneous
  Country: BR (occurrence: BR)
  Receive Date: 20200109
  Receipt Date: 20200115
  Transmission Date: 20200409
  Serious: Yes (Hospitalization, Other)
  Sender: FDA-Public Use
  Company Number: BR-PFIZER INC-2020008814

PATIENT
  Age: 86 Year
  Sex: Female
  Weight: 72 kg

DRUGS (6)
  1. MECLIN [Concomitant]
     Dosage: UNK
  2. VENAFLON [Concomitant]
     Dosage: UNK
  3. EFEXOR XR [Suspect]
     Active Substance: VENLAFAXINE HYDROCHLORIDE
     Dosage: 112.5 MG, DAILY(ONE CAPSULE OF 75 MG IN THE MORNING AND ONE CAPSULE OF 37.5 MG AT NIGHT)
     Dates: start: 2000
  4. EFEXOR XR [Suspect]
     Active Substance: VENLAFAXINE HYDROCHLORIDE
     Indication: DEPRESSION
     Dosage: 112.5 MG, DAILY(ONE CAPSULE OF 75 MG IN THE MORNING AND ONE CAPSULE OF 37.5 MG AT NIGHT)
     Dates: start: 2000
  5. WELLBUTRIN [Concomitant]
     Active Substance: BUPROPION HYDROCHLORIDE
     Indication: DEPRESSION
     Dosage: FOR 5 OR 6 DAYS UNTIL IT REGULATES THE CRISIS
  6. LYRICA [Concomitant]
     Active Substance: PREGABALIN
     Dosage: UNK

REACTIONS (8)
  - Rectal abscess [Not Recovered/Not Resolved]
  - Spinal column injury [Recovered/Resolved]
  - Fibula fracture [Recovered/Resolved]
  - Fall [Recovered/Resolved]
  - Cataract [Recovered/Resolved]
  - Product dose omission [Unknown]
  - Drug dependence [Not Recovered/Not Resolved]
  - Tendon rupture [Recovered/Resolved]

NARRATIVE: CASE EVENT DATE: 2004
